FAERS Safety Report 8465531-6 (Version None)
Quarter: 2012Q2

REPORT INFORMATION
  Report Type: 
  Country: None (occurrence: None)
  Receive Date: 20120626
  Receipt Date: 20120618
  Transmission Date: 20120825
  Serious: Yes (Other)
  Sender: FDA-Public Use
  Company Number: IE-NOVOPROD-351259

PATIENT
  Age: 47 Year
  Sex: Male
  Weight: 130 kg

DRUGS (6)
  1. VICTOZA [Suspect]
     Dosage: 1.2 MG, QD
     Route: 058
     Dates: end: 20120420
  2. PERINDOPRIL ERBUMINE [Concomitant]
     Dosage: 2.5 MG, QD
  3. VICTOZA [Suspect]
     Indication: TYPE 2 DIABETES MELLITUS
     Dosage: 0.6 MG, QD
     Route: 058
     Dates: start: 20110307
  4. LEVEMIR [Concomitant]
  5. NOVORAPID [Concomitant]
  6. METFORMIN HCL [Concomitant]
     Dosage: UNK
     Dates: start: 20070101, end: 20110101

REACTIONS (1)
  - OESOPHAGEAL ADENOCARCINOMA METASTATIC [None]
